FAERS Safety Report 22836835 (Version 2)
Quarter: 2024Q1

REPORT INFORMATION
  Report Type: Report from Study
  Country: US (occurrence: US)
  Receive Date: 20230818
  Receipt Date: 20240228
  Transmission Date: 20240409
  Serious: Yes (Hospitalization, Other)
  Sender: FDA-Public Use
  Company Number: US-JAZZ PHARMACEUTICALS-2023-US-017409

PATIENT
  Sex: Male

DRUGS (3)
  1. EPIDIOLEX [Suspect]
     Active Substance: CANNABIDIOL
     Indication: Lennox-Gastaut syndrome
     Dosage: 1.5 MILLILITER, BID
     Route: 048
     Dates: start: 202209
  2. EPIDIOLEX [Suspect]
     Active Substance: CANNABIDIOL
     Dosage: 1 MILLILITER, BID
     Route: 048
     Dates: start: 202209
  3. OMNITROPE [Concomitant]
     Active Substance: SOMATROPIN
     Indication: Product used for unknown indication

REACTIONS (4)
  - Hospitalisation [Unknown]
  - Seizure [Unknown]
  - Emergency care [Unknown]
  - Product administration interrupted [Unknown]

NARRATIVE: CASE EVENT DATE: 20230101
